FAERS Safety Report 10444951 (Version 1)
Quarter: 2014Q3

REPORT INFORMATION
  Report Type: Spontaneous
  Country: PL (occurrence: PL)
  Receive Date: 20140910
  Receipt Date: 20140910
  Transmission Date: 20150326
  Serious: Yes (Life-Threatening)
  Sender: FDA-Public Use
  Company Number: PL-ASTRAZENECA-2014SE67609

PATIENT
  Age: 16 Year
  Sex: Female

DRUGS (2)
  1. PROPOFOL. [Suspect]
     Active Substance: PROPOFOL
     Indication: INDUCTION OF ANAESTHESIA
     Route: 042
  2. SEVOFLURANE. [Suspect]
     Active Substance: SEVOFLURANE
     Indication: MAINTENANCE OF ANAESTHESIA
     Route: 055

REACTIONS (4)
  - Sinus tachycardia [Recovered/Resolved]
  - Hypovolaemic shock [Recovered/Resolved]
  - End-tidal CO2 decreased [Recovered/Resolved]
  - Metabolic acidosis [Recovered/Resolved]
